FAERS Safety Report 8217760-4 (Version None)
Quarter: 2012Q1

REPORT INFORMATION
  Report Type: 
  Country: None (occurrence: None)
  Receive Date: 20120319
  Receipt Date: 20120306
  Transmission Date: 20120608
  Serious: No
  Sender: FDA-Public Use
  Company Number: ZA-JNJFOC-20120305209

PATIENT
  Age: 72 Year
  Sex: Male

DRUGS (1)
  1. DURAGESIC-100 [Suspect]
     Indication: PAIN
     Route: 062
     Dates: start: 20120302, end: 20120304

REACTIONS (2)
  - MEDICATION ERROR [None]
  - EXPIRED DRUG ADMINISTERED [None]
